FAERS Safety Report 11510427 (Version 2)
Quarter: 2015Q4

REPORT INFORMATION
  Report Type: Spontaneous
  Country: IT (occurrence: IT)
  Receive Date: 20150915
  Receipt Date: 20151013
  Transmission Date: 20160304
  Serious: Yes (Death)
  Sender: FDA-Public Use
  Company Number: IT-JNJFOC-20150908593

PATIENT
  Age: 69 Year
  Sex: Male

DRUGS (4)
  1. XEPLION [Suspect]
     Active Substance: PALIPERIDONE PALMITATE
     Indication: PRODUCT USED FOR UNKNOWN INDICATION
     Route: 030
     Dates: start: 20150720, end: 20150720
  2. XEPLION [Suspect]
     Active Substance: PALIPERIDONE PALMITATE
     Indication: PRODUCT USED FOR UNKNOWN INDICATION
     Route: 030
     Dates: start: 201401
  3. XEPLION [Suspect]
     Active Substance: PALIPERIDONE PALMITATE
     Indication: PRODUCT USED FOR UNKNOWN INDICATION
     Route: 030
     Dates: start: 20150817, end: 20150817
  4. TALOFEN [Suspect]
     Active Substance: PROMAZINE HYDROCHLORIDE
     Indication: PRODUCT USED FOR UNKNOWN INDICATION
     Route: 065

REACTIONS (1)
  - Neuroleptic malignant syndrome [Fatal]

NARRATIVE: CASE EVENT DATE: 20150901
